FAERS Safety Report 8029801 (Version 15)
Quarter: 2014Q1

REPORT INFORMATION
  Report Type: Spontaneous
  Country: CA (occurrence: CA)
  Receive Date: 20110711
  Receipt Date: 20140305
  Transmission Date: 20141002
  Serious: Yes (Other)
  Sender: FDA-Public Use
  Company Number: CA-ROCHE-GNE321072

PATIENT
  Age: 31 Year
  Sex: Female

DRUGS (7)
  1. XOLAIR [Suspect]
     Indication: ASTHMA
     Dosage: 300 MG, Q2W
     Route: 058
     Dates: start: 20110207
  2. XOLAIR [Suspect]
     Route: 058
     Dates: start: 20130408
  3. XOLAIR [Suspect]
     Route: 058
     Dates: start: 20130422
  4. XOLAIR [Suspect]
     Route: 058
     Dates: start: 20130507
  5. XOLAIR [Suspect]
     Route: 058
     Dates: start: 20131023
  6. XOLAIR [Suspect]
     Route: 058
     Dates: start: 20140114
  7. AZITHROMYCIN [Concomitant]
     Indication: PRODUCT USED FOR UNKNOWN INDICATION
     Route: 065

REACTIONS (15)
  - Drug hypersensitivity [Recovering/Resolving]
  - Nasopharyngitis [Unknown]
  - Thalassaemia [Unknown]
  - Respiratory tract infection [Unknown]
  - Obstructive airways disorder [Unknown]
  - Drug ineffective [Unknown]
  - Cough [Unknown]
  - Anaemia [Unknown]
  - Influenza [Unknown]
  - Wheezing [Recovered/Resolved]
  - Asthma [Unknown]
  - Pulmonary congestion [Unknown]
  - Blood pressure systolic increased [Unknown]
  - Respiratory rate increased [Unknown]
  - Weight decreased [Unknown]
